FAERS Safety Report 7689458-2 (Version None)
Quarter: 2011Q3

REPORT INFORMATION
  Report Type: 
  Country: None (occurrence: None)
  Receive Date: 20110817
  Receipt Date: 20110808
  Transmission Date: 20111222
  Serious: Yes (Other)
  Sender: FDA-Public Use
  Company Number: US-ASTRAZENECA-2011SE47900

PATIENT
  Age: 63 Year
  Sex: Female

DRUGS (3)
  1. NEXIUM [Suspect]
     Route: 048
  2. ARIMIDEX [Concomitant]
  3. PROTONIX [Concomitant]

REACTIONS (2)
  - COLORECTAL CANCER STAGE III [None]
  - OSTEOPOROSIS [None]
